FAERS Safety Report 12798159 (Version 1)
Quarter: 2016Q3

REPORT INFORMATION
  Report Type: Spontaneous
  Country: FR (occurrence: FR)
  Receive Date: 20160930
  Receipt Date: 20160930
  Transmission Date: 20161109
  Serious: Yes (Hospitalization, Other)
  Sender: FDA-Public Use
  Company Number: FR-PAR PHARMACEUTICAL COMPANIES-2016SCPR015892

PATIENT

DRUGS (1)
  1. METRONIDAZOLE. [Suspect]
     Active Substance: METRONIDAZOLE
     Indication: CLOSTRIDIUM DIFFICILE COLITIS
     Dosage: 500 MG, TID
     Route: 048

REACTIONS (2)
  - Toxic encephalopathy [Recovered/Resolved]
  - Fall [Recovered/Resolved]
